FAERS Safety Report 24948935 (Version 3)
Quarter: 2025Q1

REPORT INFORMATION
  Report Type: Spontaneous
  Country: JP (occurrence: JP)
  Receive Date: 20250210
  Receipt Date: 20250321
  Transmission Date: 20250408
  Serious: Yes (Death)
  Sender: PFIZER
  Company Number: JP-PFIZER INC-202500027639

PATIENT
  Age: 19 Year
  Sex: Male
  Weight: 72 kg

DRUGS (9)
  1. FOSPHENYTOIN SODIUM [Suspect]
     Active Substance: FOSPHENYTOIN SODIUM
     Indication: Status epilepticus
     Route: 042
     Dates: start: 20250131, end: 20250131
  2. FOSPHENYTOIN SODIUM [Suspect]
     Active Substance: FOSPHENYTOIN SODIUM
     Route: 042
     Dates: start: 20250201, end: 20250201
  3. LEVETIRACETAM [Concomitant]
     Active Substance: LEVETIRACETAM
     Indication: Status epilepticus
     Route: 065
     Dates: start: 20250131, end: 20250201
  4. VIMPAT [Concomitant]
     Active Substance: LACOSAMIDE
     Indication: Status epilepticus
     Route: 065
     Dates: start: 20250131, end: 20250201
  5. DIAZEPAM [Concomitant]
     Active Substance: DIAZEPAM
     Indication: Status epilepticus
     Route: 065
     Dates: start: 20250131, end: 20250201
  6. MIDAZOLAM [Concomitant]
     Active Substance: MIDAZOLAM
     Indication: Status epilepticus
     Route: 065
     Dates: start: 20250131, end: 20250201
  7. PHENOBARBITAL [Concomitant]
     Active Substance: PHENOBARBITAL
     Indication: Status epilepticus
     Route: 065
     Dates: start: 20250131, end: 20250201
  8. HEPARIN SODIUM [Concomitant]
     Active Substance: HEPARIN SODIUM
     Indication: Thrombosis
     Route: 042
     Dates: start: 20250131, end: 20250201
  9. HEPARIN SODIUM [Concomitant]
     Active Substance: HEPARIN SODIUM
     Route: 042

REACTIONS (3)
  - Acute kidney injury [Fatal]
  - Renal embolism [Fatal]
  - Cerebral venous sinus thrombosis [Fatal]

NARRATIVE: CASE EVENT DATE: 20250201
